FAERS Safety Report 9979409 (Version 1)
Quarter: 2014Q1

REPORT INFORMATION
  Report Type: Report from Study
  Country: PR (occurrence: PR)
  Receive Date: 20140306
  Receipt Date: 20140306
  Transmission Date: 20141002
  Serious: Yes (Hospitalization, Other)
  Sender: FDA-Public Use
  Company Number: PR-ABBVIE-13P-131-1168835-00

PATIENT
  Age: 66 Year
  Sex: Female
  Weight: 66.28 kg

DRUGS (3)
  1. HUMIRA [Suspect]
     Indication: RHEUMATOID ARTHRITIS
     Route: 058
     Dates: start: 2008, end: 20131028
  2. METHOTREXATE [Concomitant]
     Indication: RHEUMATOID ARTHRITIS
     Dates: start: 2008
  3. PREVACID [Concomitant]
     Indication: GASTRITIS
     Route: 048

REACTIONS (5)
  - Asthma [Recovering/Resolving]
  - Knee arthroplasty [Unknown]
  - Hypercholesterolaemia [Unknown]
  - Urinary tract infection [Recovered/Resolved]
  - Diverticulum [Unknown]
